FAERS Safety Report 7680695-X (Version None)
Quarter: 2011Q3

REPORT INFORMATION
  Report Type: 
  Country: None (occurrence: None)
  Receive Date: 20110811
  Receipt Date: 20110811
  Transmission Date: 20111222
  Serious: No
  Sender: FDA-Public Use
  Company Number: None

PATIENT
  Sex: Female
  Weight: 75.4 kg

DRUGS (2)
  1. DEXAMETHASONE [Suspect]
     Dosage: 120MG
     Dates: end: 20050901
  2. REVLIMID [Suspect]
     Dosage: 450MG
     Dates: end: 20050901

REACTIONS (1)
  - SQUAMOUS CELL CARCINOMA OF SKIN [None]
